FAERS Safety Report 14563551 (Version 3)
Quarter: 2018Q2

REPORT INFORMATION
  Report Type: Report from Study
  Country: US (occurrence: US)
  Receive Date: 20180222
  Receipt Date: 20180419
  Transmission Date: 20180711
  Serious: Yes (Other)
  Sender: FDA-Public Use
  Company Number: US-TEVA-2018-US-860562

PATIENT
  Sex: Male

DRUGS (11)
  1. CLOZAPINE. [Suspect]
     Active Substance: CLOZAPINE
     Route: 048
     Dates: start: 20180301, end: 20180313
  2. LEVOTHYROXINE. [Concomitant]
     Active Substance: LEVOTHYROXINE
  3. VITAMIN D [Concomitant]
     Active Substance: CHOLECALCIFEROL
  4. OXYBUTYNIN HYDROCHLORIDE [Concomitant]
     Active Substance: OXYBUTYNIN CHLORIDE
  5. TOPIRAMATE. [Concomitant]
     Active Substance: TOPIRAMATE
  6. LACTULOSE. [Concomitant]
     Active Substance: LACTULOSE
  7. OMEPRAZOLE. [Concomitant]
     Active Substance: OMEPRAZOLE
  8. CLOZAPINE. [Suspect]
     Active Substance: CLOZAPINE
     Dosage: 300 MILLIGRAM DAILY;
     Route: 048
     Dates: start: 20080209, end: 20180213
  9. LOXAPINE. [Concomitant]
     Active Substance: LOXAPINE
  10. OLANZAPINE. [Concomitant]
     Active Substance: OLANZAPINE
  11. CALCIUM CITRATE [Concomitant]
     Active Substance: CALCIUM CITRATE

REACTIONS (1)
  - Granulocytosis [Recovered/Resolved]
